FAERS Safety Report 16508771 (Version 1)
Quarter: 2019Q3

REPORT INFORMATION
  Report Type: Report from Study
  Country: GB (occurrence: GB)
  Receive Date: 20190702
  Receipt Date: 20190702
  Transmission Date: 20191004
  Serious: Yes (Other)
  Sender: FDA-Public Use
  Company Number: GB-ROCHE-2346042

PATIENT
  Sex: Female

DRUGS (3)
  1. DULOXETINE. [Concomitant]
     Active Substance: DULOXETINE
  2. SULFASALAZINE. [Concomitant]
     Active Substance: SULFASALAZINE
  3. ROACTEMRA [Suspect]
     Active Substance: TOCILIZUMAB
     Indication: RHEUMATOID ARTHRITIS
     Route: 058
     Dates: start: 20190611

REACTIONS (4)
  - Rash erythematous [Unknown]
  - Feeling abnormal [Unknown]
  - Rash pruritic [Unknown]
  - Mass [Unknown]
